FAERS Safety Report 16476583 (Version 1)
Quarter: 2019Q2

REPORT INFORMATION
  Report Type: Spontaneous
  Country: ES (occurrence: ES)
  Receive Date: 20190626
  Receipt Date: 20190626
  Transmission Date: 20190711
  Serious: Yes (Other)
  Sender: FDA-Public Use
  Company Number: ES-MYLANLABS-2019M1058161

PATIENT
  Age: 11 Year
  Sex: Female

DRUGS (4)
  1. ESTILSONA [Concomitant]
     Active Substance: PREDNISOLONE STEAGLATE
     Indication: NASOPHARYNGITIS
     Dosage: UNK
     Dates: start: 201810, end: 201810
  2. BUDESONIDE. [Suspect]
     Active Substance: BUDESONIDE
     Indication: ASTHMA
     Dosage: UNK
  3. VENTOLIN [Interacting]
     Active Substance: ALBUTEROL SULFATE
     Indication: ASTHMA
     Dosage: UNK
  4. ACTITHIOL ANTIHIST                 /08450701/ [Concomitant]
     Indication: NASOPHARYNGITIS
     Dosage: UNK
     Dates: start: 201810, end: 201810

REACTIONS (8)
  - Product use issue [Unknown]
  - Drug interaction [Unknown]
  - Muscle rigidity [Recovered/Resolved]
  - Speech disorder [Recovered/Resolved]
  - Sleep terror [Recovered/Resolved]
  - Oral disorder [Recovered/Resolved]
  - Movement disorder [Recovered/Resolved]
  - Epilepsy [Recovered/Resolved]

NARRATIVE: CASE EVENT DATE: 20181008
